FAERS Safety Report 6661772-9 (Version None)
Quarter: 2010Q1

REPORT INFORMATION
  Report Type: 
  Country: None (occurrence: None)
  Receive Date: 20100331
  Receipt Date: 20090615
  Transmission Date: 20100710
  Serious: Yes (Hospitalization)
  Sender: FDA-Public Use
  Company Number: US-BRISTOL-MYERS SQUIBB COMPANY-14664957

PATIENT
  Age: 66 Year
  Sex: Female

DRUGS (3)
  1. ERBITUX [Suspect]
     Indication: COLON CANCER
     Dosage: 1ST DOSE
  2. CARBOPLATIN [Concomitant]
  3. TAXOTERE [Concomitant]

REACTIONS (1)
  - WHEEZING [None]
